FAERS Safety Report 24175065 (Version 1)
Quarter: 2024Q3

REPORT INFORMATION
  Report Type: Report from Study
  Country: US (occurrence: US)
  Receive Date: 20240805
  Receipt Date: 20240805
  Transmission Date: 20241016
  Serious: Yes (Other)
  Sender: MYLAN
  Company Number: US-MYLANLABS-2024M1070462

PATIENT
  Age: 78 Year
  Sex: Male
  Weight: 74.38 kg

DRUGS (18)
  1. AMLODIPINE [Interacting]
     Active Substance: AMLODIPINE BESYLATE
     Indication: Product used for unknown indication
     Dosage: 5 MILLIGRAM
     Route: 065
  2. AMLODIPINE [Interacting]
     Active Substance: AMLODIPINE BESYLATE
     Dosage: 5 MILLIGRAM, BID (TWICE DAILY)
     Route: 065
  3. AMLODIPINE [Interacting]
     Active Substance: AMLODIPINE BESYLATE
     Dosage: UNK
     Route: 065
  4. ENZALUTAMIDE [Interacting]
     Active Substance: ENZALUTAMIDE
     Indication: Prostate cancer
     Dosage: 160 MILLIGRAM, QD (ONCE DAILY)
     Route: 048
     Dates: start: 20210321
  5. ENZALUTAMIDE [Interacting]
     Active Substance: ENZALUTAMIDE
     Dosage: 160 MILLIGRAM, QD (ONCE DAILY)
     Route: 048
     Dates: start: 20210321
  6. ENZALUTAMIDE [Interacting]
     Active Substance: ENZALUTAMIDE
     Dosage: 160 MILLIGRAM, QD (ONCE DAILY)
     Route: 048
     Dates: start: 20210321
  7. ENZALUTAMIDE [Interacting]
     Active Substance: ENZALUTAMIDE
     Dosage: 160 MILLIGRAM, QD (ONCE DAILY)
     Route: 048
     Dates: start: 20210321
  8. ELIGARD [Concomitant]
     Active Substance: LEUPROLIDE ACETATE
     Dosage: 7.5 MILLIGRAM
     Route: 065
     Dates: start: 20210129
  9. SACCHAROMYCES CEREVISIAE [Concomitant]
     Active Substance: SACCHAROMYCES CEREVISIAE
     Dosage: 250 MILLIGRAM
     Route: 065
  10. TYLENOL [Concomitant]
     Active Substance: ACETAMINOPHEN
     Dosage: 325 MILLIGRAM
     Route: 065
  11. VITAMIN D [Concomitant]
     Active Substance: VITAMIN D NOS
     Dosage: UNK
     Route: 065
  12. METFORMIN HYDROCHLORIDE [Concomitant]
     Active Substance: METFORMIN HYDROCHLORIDE
     Dosage: 500 MILLIGRAM
     Route: 065
  13. PRAVASTATIN SODIUM [Concomitant]
     Active Substance: PRAVASTATIN SODIUM
     Dosage: 20 MILLIGRAM
     Route: 065
  14. HYDROCHLOROTHIAZIDE [Concomitant]
     Active Substance: HYDROCHLOROTHIAZIDE
     Dosage: 12.5 MILLIGRAM
     Route: 065
  15. LISINOPRIL [Concomitant]
     Active Substance: LISINOPRIL
     Dosage: 10 MILLIGRAM
     Route: 065
  16. FERROUS SULFATE [Concomitant]
     Active Substance: FERROUS SULFATE
     Dosage: UNK
     Route: 065
  17. POTASSIUM [Concomitant]
     Active Substance: POTASSIUM
     Dosage: UNK
     Route: 065
  18. PHAZYME [Concomitant]
     Active Substance: DIMETHICONE 410
     Dosage: UNK
     Route: 065

REACTIONS (10)
  - Hypertension [Recovering/Resolving]
  - Mood swings [Recovering/Resolving]
  - Dizziness [Recovering/Resolving]
  - Malaise [Unknown]
  - Fatigue [Unknown]
  - Haemoglobin decreased [Unknown]
  - Depressed mood [Recovering/Resolving]
  - Mobility decreased [Unknown]
  - Muscular weakness [Unknown]
  - Drug interaction [Unknown]

NARRATIVE: CASE EVENT DATE: 20210301
